FAERS Safety Report 13923239 (Version 1)
Quarter: 2017Q3

REPORT INFORMATION
  Report Type: Spontaneous
  Country: US (occurrence: US)
  Receive Date: 20170831
  Receipt Date: 20170831
  Transmission Date: 20171127
  Serious: No
  Sender: FDA-Public Use
  Company Number: US-SCIEGEN PHARMACEUTICALS INC-2017SCISPO00544

PATIENT

DRUGS (1)
  1. BUPROPION HYDROCHLORIDE. [Suspect]
     Active Substance: BUPROPION HYDROCHLORIDE
     Indication: STRESS
     Dosage: 100 MG, BID
     Route: 065
     Dates: start: 20170816

REACTIONS (4)
  - Product odour abnormal [Unknown]
  - Product used for unknown indication [Unknown]
  - Abdominal discomfort [Unknown]
  - Rash generalised [Unknown]

NARRATIVE: CASE EVENT DATE: 201708
